FAERS Safety Report 9371727 (Version 1)
Quarter: 2013Q2

REPORT INFORMATION
  Report Type: Spontaneous
  Country: US (occurrence: US)
  Receive Date: 20130627
  Receipt Date: 20130627
  Transmission Date: 20140414
  Serious: No
  Sender: FDA-Public Use
  Company Number: US-TEVA-414449USA

PATIENT
  Sex: Male

DRUGS (5)
  1. AZILECT [Suspect]
     Indication: PARKINSON^S DISEASE
  2. MELATONIN [Concomitant]
     Indication: SLEEP DISORDER
  3. TRAZODONE [Concomitant]
     Indication: DEPRESSION
  4. CITALOPRAM [Concomitant]
     Indication: DEPRESSION
  5. SINEMET [Concomitant]

REACTIONS (3)
  - Dyskinesia [Recovered/Resolved]
  - Restless legs syndrome [Recovered/Resolved]
  - Hyperventilation [Recovered/Resolved]
